FAERS Safety Report 18383688 (Version 1)
Quarter: 2020Q4

REPORT INFORMATION
  Report Type: Spontaneous
  Country: ZA (occurrence: ZA)
  Receive Date: 20201014
  Receipt Date: 20201014
  Transmission Date: 20210114
  Serious: Yes (Other)
  Sender: FDA-Public Use
  Company Number: ZA-PFIZER INC-2020394271

PATIENT
  Sex: Female

DRUGS (1)
  1. MEROPENEM. [Suspect]
     Active Substance: MEROPENEM
     Dosage: UNK

REACTIONS (4)
  - Confusional state [Unknown]
  - Fall [Unknown]
  - Femur fracture [Unknown]
  - Haemorrhage [Unknown]

NARRATIVE: CASE EVENT DATE: 2020
